FAERS Safety Report 4953797-6 (Version None)
Quarter: 2006Q1

REPORT INFORMATION
  Report Type: 
  Country: None (occurrence: None)
  Receive Date: 20060324
  Receipt Date: 20060324
  Transmission Date: 20060701
  Serious: Yes (Hospitalization, Other)
  Sender: FDA-Public Use
  Company Number: None

PATIENT
  Age: 54 Year
  Sex: Male
  Weight: 86.1834 kg

DRUGS (2)
  1. AVONEX [Suspect]
     Indication: MULTIPLE SCLEROSIS
     Dosage: 30 MCG ONCE A WEEK IM
     Route: 030
     Dates: start: 19981212, end: 20060317
  2. AVONEX BETA INTERFERON LA [Concomitant]

REACTIONS (3)
  - BACK PAIN [None]
  - CHEST PAIN [None]
  - GROIN PAIN [None]
